FAERS Safety Report 12550405 (Version 1)
Quarter: 2016Q3

REPORT INFORMATION
  Report Type: Spontaneous
  Country: GB (occurrence: GB)
  Receive Date: 20160712
  Receipt Date: 20160712
  Transmission Date: 20161109
  Serious: Yes (Other)
  Sender: FDA-Public Use
  Company Number: GB-SA-2016SA125517

PATIENT
  Sex: Female

DRUGS (1)
  1. LEMTRADA [Suspect]
     Active Substance: ALEMTUZUMAB
     Dosage: PATIENT HAD COMPLETED HER SECOND CYCLE OF LEMTRADA IN FEBRUARY.
     Route: 065

REACTIONS (1)
  - Lymphocyte count decreased [Unknown]
